FAERS Safety Report 21519144 (Version 1)
Quarter: 2022Q4

REPORT INFORMATION
  Report Type: Spontaneous
  Country: US (occurrence: None)
  Receive Date: 20221027
  Receipt Date: 20221027
  Transmission Date: 20230113
  Serious: Yes (Hospitalization)
  Sender: FDA-Public Use
  Company Number: None

PATIENT
  Age: 66 Year
  Sex: Male
  Weight: 61 kg

DRUGS (1)
  1. ZOLPIDEM TARTRATE [Suspect]
     Active Substance: ZOLPIDEM TARTRATE
     Dosage: FREQUENCY : AT BEDTIME;?
     Route: 048
     Dates: start: 20090921

REACTIONS (3)
  - Confusional state [None]
  - Overdose [None]
  - Prescription drug used without a prescription [None]

NARRATIVE: CASE EVENT DATE: 20221023
